FAERS Safety Report 8255091-7 (Version None)
Quarter: 2012Q2

REPORT INFORMATION
  Report Type: 
  Country: None (occurrence: None)
  Receive Date: 20120403
  Receipt Date: 20120323
  Transmission Date: 20120825
  Serious: Yes (Hospitalization)
  Sender: FDA-Public Use
  Company Number: FR-NOVOPROD-337949

PATIENT
  Age: 36 Year
  Sex: Female

DRUGS (13)
  1. SPAGULAX [Suspect]
     Dosage: UNK
     Route: 048
     Dates: start: 20110601
  2. KEPPRA [Concomitant]
     Dosage: 2.5 G, QD
     Route: 048
  3. FENOFIBRATE [Concomitant]
     Dosage: 145 MG,QD
     Route: 048
  4. LEVOTHYROXINE SODIUM [Concomitant]
     Dosage: 25 A?G, QD
     Route: 048
  5. REPAGLINIDE [Suspect]
     Indication: DIABETES MELLITUS
     Dosage: (2 MG IN MORNING, 2 MG AT NOON AND 2 MG AT EVENING)
     Route: 058
     Dates: start: 20110622
  6. VIMPAT [Concomitant]
     Dosage: UNK UNK, BID
     Route: 048
  7. TRANSULOSE [Suspect]
  8. METEOSPASMYL                       /01017401/ [Suspect]
     Dosage: UNK
     Route: 048
     Dates: start: 20110601
  9. LEVEMIR [Concomitant]
     Dosage: 25 UI AT MORNING
     Route: 058
  10. DEPAKOTE [Concomitant]
     Dosage: 2.5 G, QD
     Route: 048
  11. ESCITALOPRAM OXALATE [Concomitant]
     Dosage: 10 MG, QD
     Route: 048
  12. RISPERDAL [Concomitant]
     Dosage: 1 MG, QD
     Route: 048
  13. REVIA [Concomitant]
     Dosage: 50 MG, QD
     Route: 048

REACTIONS (2)
  - SKIN LESION [None]
  - PRURITUS [None]
